FAERS Safety Report 7653015-4 (Version None)
Quarter: 2011Q3

REPORT INFORMATION
  Report Type: 
  Country: None (occurrence: None)
  Receive Date: 20110722
  Receipt Date: 20110328
  Transmission Date: 20111222
  Serious: Yes (Hospitalization)
  Sender: FDA-Public Use
  Company Number: UTC-005865

PATIENT
  Age: 73 Year
  Sex: Female

DRUGS (3)
  1. ADCIRCA [Concomitant]
  2. REMODULIN [Suspect]
     Dosage: 56.304 UG/KG (0.0391 UG/KG, 1 IN 1 MIN), SUBCUTANEOUS
     Route: 058
     Dates: start: 20100701
  3. COUMADIN [Concomitant]

REACTIONS (2)
  - HEADACHE [None]
  - FLUSHING [None]
